FAERS Safety Report 13459065 (Version 6)
Quarter: 2017Q3

REPORT INFORMATION
  Report Type: Spontaneous
  Country: US (occurrence: US)
  Receive Date: 20170419
  Receipt Date: 20170926
  Transmission Date: 20171127
  Serious: Yes (Other)
  Sender: FDA-Public Use
  Company Number: PHEH2017US011404

PATIENT
  Age: 37 Year
  Sex: Female

DRUGS (1)
  1. ZOFRAN [Suspect]
     Active Substance: ONDANSETRON HYDROCHLORIDE
     Indication: VOMITING IN PREGNANCY
     Dosage: 1 DF, Q6H
     Route: 048
     Dates: start: 200210, end: 200301

REACTIONS (12)
  - Ovarian cyst [Unknown]
  - Anaemia [Unknown]
  - Premature delivery [Unknown]
  - Cervical cyst [Unknown]
  - Complication of pregnancy [Unknown]
  - Maternal exposure during pregnancy [Unknown]
  - Post lumbar puncture syndrome [Unknown]
  - Emotional distress [Unknown]
  - Gestational diabetes [Unknown]
  - Anxiety [Unknown]
  - Product use in unapproved indication [Unknown]
  - Premature labour [Unknown]

NARRATIVE: CASE EVENT DATE: 20030520
